FAERS Safety Report 24606806 (Version 1)
Quarter: 2024Q4

REPORT INFORMATION
  Report Type: Spontaneous
  Country: US (occurrence: US)
  Receive Date: 20241112
  Receipt Date: 20241112
  Transmission Date: 20250114
  Serious: Yes (Life-Threatening, Hospitalization, Disabling)
  Sender: ACCORD
  Company Number: US-Accord-454612

PATIENT
  Age: 31 Year
  Sex: Female

DRUGS (3)
  1. TACROLIMUS [Suspect]
     Active Substance: TACROLIMUS
     Indication: Graft versus host disease in lung
     Dates: start: 2018, end: 20210303
  2. RITUXAN [Suspect]
     Active Substance: RITUXIMAB
     Indication: Graft versus host disease in lung
     Dosage: FOR 4 WEEKS
     Dates: start: 202005, end: 2021
  3. RITUXAN [Suspect]
     Active Substance: RITUXIMAB
     Indication: Immunosuppressant drug therapy
     Dosage: FOR 4 WEEKS
     Dates: start: 202005, end: 2021

REACTIONS (6)
  - Purpura fulminans [Recovering/Resolving]
  - Capnocytophaga sepsis [Recovering/Resolving]
  - Septic shock [Recovering/Resolving]
  - Cardiogenic shock [Recovering/Resolving]
  - Disseminated intravascular coagulation [Unknown]
  - Gangrene [Unknown]

NARRATIVE: CASE EVENT DATE: 20210101
